FAERS Safety Report 7331514-2 (Version None)
Quarter: 2011Q1

REPORT INFORMATION
  Report Type: 
  Country: None (occurrence: None)
  Receive Date: 20110228
  Receipt Date: 20110228
  Transmission Date: 20110831
  Serious: No
  Sender: FDA-Public Use
  Company Number: None

PATIENT
  Age: 59 Year
  Sex: Male
  Weight: 90.7194 kg

DRUGS (1)
  1. ALLOPURINOL [Suspect]
     Indication: GOUT
     Dosage: 300 MG 1 PER DAY PO
     Route: 048

REACTIONS (7)
  - DISTURBANCE IN ATTENTION [None]
  - ARTHRALGIA [None]
  - INSOMNIA [None]
  - ASTHENIA [None]
  - IMPAIRED WORK ABILITY [None]
  - FATIGUE [None]
  - PAIN [None]
